FAERS Safety Report 5363514-6 (Version None)
Quarter: 2007Q2

REPORT INFORMATION
  Report Type: 
  Country: None (occurrence: None)
  Receive Date: 20070618
  Receipt Date: 20070606
  Transmission Date: 20071010
  Serious: Yes (Other)
  Sender: FDA-Public Use
  Company Number: 6034368

PATIENT
  Age: 74 Year
  Sex: Female

DRUGS (5)
  1. CONCOR 5 MG (BISOPROLOL FUMARATE) [Suspect]
     Indication: CARDIAC FAILURE
     Dosage: 5 MG (5 MG, 1 IN 1 D), ORAL
     Route: 048
     Dates: start: 20070322, end: 20070418
  2. OLIVIN (ENALAPRIL) [Concomitant]
  3. CORDIPIN XL [Concomitant]
  4. TRAMADOL HCL [Concomitant]
  5. VOLTAREN [Concomitant]

REACTIONS (2)
  - DYSPNOEA [None]
  - INJURY ASPHYXIATION [None]
